FAERS Safety Report 11030631 (Version 1)
Quarter: 2015Q2

REPORT INFORMATION
  Report Type: Spontaneous
  Country: US (occurrence: US)
  Receive Date: 20150415
  Receipt Date: 20150415
  Transmission Date: 20150821
  Serious: Yes (Disabling, Congenital Anomaly, Other)
  Sender: FDA-Public Use
  Company Number: US-ABBVIE-15P-163-1373961-00

PATIENT
  Age: 1 Day
  Sex: Female

DRUGS (1)
  1. DEPAKOTE [Suspect]
     Active Substance: DIVALPROEX SODIUM
     Indication: MATERNAL EXPOSURE TIMING UNSPECIFIED
     Route: 064

REACTIONS (15)
  - Activities of daily living impaired [Unknown]
  - Economic problem [Unknown]
  - Microcephaly [Unknown]
  - Anhedonia [Unknown]
  - Foetal anticonvulsant syndrome [Unknown]
  - Intelligence test abnormal [Unknown]
  - Emotional distress [Unknown]
  - Atrial septal defect [Unknown]
  - Pain [Unknown]
  - Cognitive disorder [Unknown]
  - Speech disorder developmental [Unknown]
  - Foetal exposure during pregnancy [Unknown]
  - Patent ductus arteriosus [Unknown]
  - Developmental delay [Unknown]
  - Disorientation [Unknown]
